FAERS Safety Report 12651487 (Version 1)
Quarter: 2016Q3

REPORT INFORMATION
  Report Type: Spontaneous
  Country: IT (occurrence: IT)
  Receive Date: 20160815
  Receipt Date: 20160815
  Transmission Date: 20161109
  Serious: Yes (Disabling)
  Sender: FDA-Public Use
  Company Number: PHHY2016IT111319

PATIENT
  Age: 64 Year
  Sex: Female

DRUGS (3)
  1. AFINITOR [Suspect]
     Active Substance: EVEROLIMUS
     Indication: METASTASES TO BONE
     Dosage: 10 MG, QD
     Route: 048
     Dates: start: 20150301, end: 20160601
  2. ZOMETA [Suspect]
     Active Substance: ZOLEDRONIC ACID
     Indication: METASTASES TO BONE
     Dosage: 4 MG, CYCLIC
     Route: 065
     Dates: start: 20140101, end: 20160201
  3. AVASTIN [Suspect]
     Active Substance: BEVACIZUMAB
     Indication: METASTASES TO BONE
     Route: 065
     Dates: start: 20131001, end: 20140201

REACTIONS (4)
  - Abscess [Unknown]
  - Tooth fracture [Unknown]
  - Toothache [Unknown]
  - Product use issue [Unknown]

NARRATIVE: CASE EVENT DATE: 20150301
